FAERS Safety Report 7278121-8 (Version None)
Quarter: 2011Q1

REPORT INFORMATION
  Report Type: 
  Country: None (occurrence: None)
  Receive Date: 20110207
  Receipt Date: 20110201
  Transmission Date: 20110831
  Serious: Yes (Hospitalization)
  Sender: FDA-Public Use
  Company Number: A0774236A

PATIENT
  Age: 45 Year
  Sex: Male

DRUGS (1)
  1. AVANDIA [Suspect]
     Indication: DIABETES MELLITUS
     Dosage: 8MG TWICE PER DAY
     Route: 048
     Dates: start: 20061101

REACTIONS (10)
  - VISION BLURRED [None]
  - PALPITATIONS [None]
  - ASTHENIA [None]
  - WEIGHT INCREASED [None]
  - DYSPNOEA [None]
  - PAIN [None]
  - FATIGUE [None]
  - CEREBROVASCULAR ACCIDENT [None]
  - OEDEMA [None]
  - CHEST PAIN [None]
